FAERS Safety Report 7654781-4 (Version None)
Quarter: 2011Q3

REPORT INFORMATION
  Report Type: 
  Country: None (occurrence: None)
  Receive Date: 20110804
  Receipt Date: 20110728
  Transmission Date: 20111222
  Serious: No
  Sender: FDA-Public Use
  Company Number: US-BIOGENIDEC-2011BI028463

PATIENT
  Sex: Female

DRUGS (2)
  1. TYSABRI [Suspect]
     Indication: MULTIPLE SCLEROSIS
     Route: 042
     Dates: start: 20090522
  2. TYSABRI [Suspect]
     Route: 042
     Dates: start: 20080423, end: 20090128

REACTIONS (2)
  - HEMIPARESIS [None]
  - MOBILITY DECREASED [None]
